FAERS Safety Report 5011063-7 (Version None)
Quarter: 2006Q2

REPORT INFORMATION
  Report Type: 
  Country: None (occurrence: None)
  Receive Date: 20060524
  Receipt Date: 20060524
  Transmission Date: 20061013
  Serious: Yes (Hospitalization)
  Sender: FDA-Public Use
  Company Number: None

PATIENT
  Age: 86 Year
  Sex: Female

DRUGS (1)
  1. LORTAB [Suspect]
     Indication: BACK PAIN
     Dosage: 10/500 MG EVERY 4 HOURS PO
     Route: 048

REACTIONS (5)
  - ARTHRALGIA [None]
  - CONTUSION [None]
  - FALL [None]
  - FEELING ABNORMAL [None]
  - PELVIC FRACTURE [None]
